FAERS Safety Report 18136582 (Version 1)
Quarter: 2020Q3

REPORT INFORMATION
  Report Type: Spontaneous
  Country: CA (occurrence: CA)
  Receive Date: 20200811
  Receipt Date: 20200811
  Transmission Date: 20201103
  Serious: Yes (Hospitalization, Other)
  Sender: FDA-Public Use
  Company Number: CA-TEVA-2020-CA-1811966

PATIENT
  Age: 31 Year
  Sex: Male
  Weight: 75 kg

DRUGS (1)
  1. PAROXETINE HYDROCHLORIDE. [Suspect]
     Active Substance: PAROXETINE HYDROCHLORIDE
     Indication: SOCIAL ANXIETY DISORDER
     Dosage: 20 MILLIGRAM DAILY;
     Route: 048

REACTIONS (22)
  - Alopecia areata [Unknown]
  - Influenza like illness [Unknown]
  - Insomnia [Unknown]
  - Tinnitus [Unknown]
  - Fatigue [Unknown]
  - Nausea [Unknown]
  - Paraesthesia [Unknown]
  - Drug withdrawal headache [Unknown]
  - Erythema multiforme [Unknown]
  - Anxiety [Unknown]
  - Irritability [Unknown]
  - Abnormal dreams [Unknown]
  - Alopecia universalis [Unknown]
  - Binge drinking [Unknown]
  - Chills [Unknown]
  - Myalgia [Unknown]
  - Vertigo [Unknown]
  - Dizziness [Unknown]
  - Depression [Unknown]
  - Cold sweat [Unknown]
  - Gastrointestinal disorder [Unknown]
  - Withdrawal syndrome [Unknown]
